FAERS Safety Report 11924310 (Version 1)
Quarter: 2016Q1

REPORT INFORMATION
  Report Type: Spontaneous
  Country: US (occurrence: US)
  Receive Date: 20160118
  Receipt Date: 20160118
  Transmission Date: 20160526
  Serious: No
  Sender: FDA-Public Use
  Company Number: US-PERRIGO-15US008572

PATIENT
  Age: 77 Year
  Sex: Female
  Weight: 53.61 kg

DRUGS (2)
  1. TIOCONAZOLE 6.5% 426 [Suspect]
     Active Substance: TIOCONAZOLE
     Indication: VULVOVAGINAL MYCOTIC INFECTION
     Dosage: 300 MG, SINGLE
     Route: 067
     Dates: start: 20150816, end: 20150816
  2. TYLENOL EXTRA STRENGTH [Concomitant]
     Active Substance: ACETAMINOPHEN
     Indication: PAIN
     Dosage: UNK
     Route: 048
     Dates: start: 20150817, end: 20150817

REACTIONS (6)
  - Nasal discomfort [Recovered/Resolved]
  - Oral discomfort [Recovered/Resolved]
  - Burning sensation [Recovered/Resolved]
  - Vulvovaginal burning sensation [Unknown]
  - Eye irritation [Recovered/Resolved]
  - Glossodynia [Recovered/Resolved]

NARRATIVE: CASE EVENT DATE: 20150816
